FAERS Safety Report 24160616 (Version 1)
Quarter: 2024Q3

REPORT INFORMATION
  Report Type: Spontaneous
  Country: CA (occurrence: CA)
  Receive Date: 20240801
  Receipt Date: 20240801
  Transmission Date: 20241016
  Serious: Yes (Other)
  Sender: CELLTRION
  Company Number: CA-CELLTRION INC.-2022CA022672

PATIENT

DRUGS (14)
  1. TRUXIMA [Suspect]
     Active Substance: RITUXIMAB-ABBS
     Indication: Vasculitis
     Dosage: 650 MG Q WEEKLY X 4
     Route: 042
     Dates: start: 20230112
  2. TRUXIMA [Suspect]
     Active Substance: RITUXIMAB-ABBS
     Dosage: 650 MG, INFUSION #2
     Route: 042
     Dates: start: 20230112
  3. TRUXIMA [Suspect]
     Active Substance: RITUXIMAB-ABBS
     Dosage: 650 MG, INFUSION #3
     Route: 042
     Dates: start: 20230112
  4. TRUXIMA [Suspect]
     Active Substance: RITUXIMAB-ABBS
     Dosage: UNK
  5. TRUXIMA [Suspect]
     Active Substance: RITUXIMAB-ABBS
     Dosage: 650 MG, INFUSION #4
     Route: 042
     Dates: start: 20230112
  6. TRUXIMA [Suspect]
     Active Substance: RITUXIMAB-ABBS
     Dosage: 650 MG X 4 WEEKS
     Route: 042
     Dates: start: 20230112
  7. TRUXIMA [Suspect]
     Active Substance: RITUXIMAB-ABBS
     Dosage: 500 MG, 1 DOSE
     Route: 042
     Dates: start: 20230810
  8. TAVNEOS [Concomitant]
     Active Substance: AVACOPAN
  9. PANTOPRAZOLE [Concomitant]
     Active Substance: PANTOPRAZOLE
  10. ACETAMINOPHEN [Concomitant]
     Active Substance: ACETAMINOPHEN
     Indication: Premedication
     Dosage: 650 MG
  11. BENADRYL [Concomitant]
     Active Substance: DIPHENHYDRAMINE HYDROCHLORIDE
     Indication: Premedication
     Dosage: 50 MG
  12. SOLU-MEDROL [Concomitant]
     Active Substance: METHYLPREDNISOLONE SODIUM SUCCINATE
     Indication: Premedication
     Dosage: 40 MG
  13. PREDNISONE [Concomitant]
     Active Substance: PREDNISONE
     Indication: Abdominal discomfort
     Dosage: 40 MG
  14. OMAOR [Concomitant]
     Dosage: 1X DAILY, 2 SQUIRTS IN EACH NOSE
     Route: 045

REACTIONS (32)
  - Chest discomfort [Not Recovered/Not Resolved]
  - Neuropathy peripheral [Unknown]
  - Dental restoration failure [Unknown]
  - Hearing disability [Unknown]
  - Hyperkeratosis [Unknown]
  - Vein collapse [Unknown]
  - Poor venous access [Unknown]
  - Infusion site extravasation [Unknown]
  - Anxiety [Unknown]
  - Dysphagia [Unknown]
  - Malaise [Not Recovered/Not Resolved]
  - Frustration tolerance decreased [Not Recovered/Not Resolved]
  - Dysstasia [Not Recovered/Not Resolved]
  - Abdominal pain [Recovered/Resolved]
  - Vasculitis [Unknown]
  - Arthritis [Unknown]
  - Chronic obstructive pulmonary disease [Unknown]
  - Dehydration [Unknown]
  - Weight increased [Not Recovered/Not Resolved]
  - Night sweats [Not Recovered/Not Resolved]
  - Oropharyngeal pain [Unknown]
  - Dyspnoea [Not Recovered/Not Resolved]
  - Diarrhoea [Recovered/Resolved]
  - Pain in extremity [Recovering/Resolving]
  - Back pain [Not Recovered/Not Resolved]
  - Dyspepsia [Not Recovered/Not Resolved]
  - Arthralgia [Unknown]
  - Infusion site bruising [Unknown]
  - Nausea [Not Recovered/Not Resolved]
  - Vomiting [Not Recovered/Not Resolved]
  - Product prescribing issue [Unknown]
  - Off label use [Unknown]

NARRATIVE: CASE EVENT DATE: 20230101
